FAERS Safety Report 15751299 (Version 1)
Quarter: 2018Q4

REPORT INFORMATION
  Report Type: Spontaneous
  Country: US (occurrence: US)
  Receive Date: 20181221
  Receipt Date: 20181221
  Transmission Date: 20190205
  Serious: Yes (Hospitalization, Other)
  Sender: FDA-Public Use
  Company Number: US-SAOL THERAPEUTICS-2018SAO01101

PATIENT
  Age: 20 Year
  Sex: Male
  Weight: 33.8 kg

DRUGS (2)
  1. LIORESAL [Suspect]
     Active Substance: BACLOFEN
     Indication: CEREBRAL PALSY
     Dosage: 1992.3 ?G, \DAY
     Route: 037
     Dates: end: 20181210
  2. LIORESAL [Suspect]
     Active Substance: BACLOFEN
     Indication: DYSTONIA
     Dosage: 1200 ?G, \DAY
     Route: 037
     Dates: start: 20181210

REACTIONS (6)
  - Dystonia [Unknown]
  - Constipation [Unknown]
  - Opisthotonus [Unknown]
  - Device dislocation [Recovered/Resolved]
  - Seizure [Recovered/Resolved]
  - Implant site extravasation [Unknown]

NARRATIVE: CASE EVENT DATE: 20181122
